FAERS Safety Report 7630076-X (Version None)
Quarter: 2011Q3

REPORT INFORMATION
  Report Type: 
  Country: None (occurrence: None)
  Receive Date: 20110714
  Receipt Date: 20110703
  Transmission Date: 20111222
  Serious: Yes (Hospitalization)
  Sender: FDA-Public Use
  Company Number: 2011SP020004

PATIENT
  Age: 95 Year
  Sex: Female

DRUGS (5)
  1. DECA-DURABOLIN [Suspect]
     Indication: HIP FRACTURE
     Dosage: 25 MG; QM; IM, 25 MG; QM' IM
     Route: 030
     Dates: start: 20101101
  2. DECA-DURABOLIN [Suspect]
     Indication: HIP FRACTURE
     Dosage: 25 MG; QM; IM, 25 MG; QM' IM
     Route: 030
     Dates: start: 20091109, end: 20100601
  3. ATENOLOL [Concomitant]
  4. CALCIUM ACETATE [Concomitant]
  5. GLUCOSAMINE [Concomitant]

REACTIONS (2)
  - OFF LABEL USE [None]
  - NO THERAPEUTIC RESPONSE [None]
